FAERS Safety Report 13023080 (Version 1)
Quarter: 2016Q4

REPORT INFORMATION
  Report Type: Spontaneous
  Country: US (occurrence: US)
  Receive Date: 20161213
  Receipt Date: 20161213
  Transmission Date: 20170207
  Serious: No
  Sender: FDA-Public Use
  Company Number: US-TEVA-697857USA

PATIENT
  Age: 8 Year
  Sex: Male
  Weight: 31.78 kg

DRUGS (1)
  1. AZITHROMYCIN ANHYDROUS. [Suspect]
     Active Substance: AZITHROMYCIN ANHYDROUS
     Dosage: 200 MG/5 ML
     Dates: start: 20160825

REACTIONS (3)
  - Gastrointestinal disorder [Unknown]
  - Diarrhoea [Unknown]
  - Gluten sensitivity [Unknown]

NARRATIVE: CASE EVENT DATE: 20160826
